FAERS Safety Report 15327609 (Version 1)
Quarter: 2018Q3

REPORT INFORMATION
  Report Type: Spontaneous
  Country: FR (occurrence: FR)
  Receive Date: 20180828
  Receipt Date: 20180828
  Transmission Date: 20181010
  Serious: Yes (Hospitalization, Other)
  Sender: FDA-Public Use
  Company Number: FR-009507513-1808FRA008640

PATIENT
  Age: 46 Year
  Sex: Female
  Weight: 115 kg

DRUGS (4)
  1. KEYTRUDA [Suspect]
     Active Substance: PEMBROLIZUMAB
     Indication: NODULAR MELANOMA
     Route: 041
     Dates: start: 20161115, end: 20171130
  2. HYPERIUM [Concomitant]
     Active Substance: RILMENIDINE PHOSPHATE
  3. LUTENYL [Concomitant]
     Active Substance: NOMEGESTROL ACETATE
  4. INTERFERON [Concomitant]
     Active Substance: INTERFERON
     Dates: start: 20151021, end: 201611

REACTIONS (2)
  - Lipodystrophy acquired [Not Recovered/Not Resolved]
  - Alopecia [Not Recovered/Not Resolved]

NARRATIVE: CASE EVENT DATE: 201711
